FAERS Safety Report 23310909 (Version 1)
Quarter: 2023Q4

REPORT INFORMATION
  Report Type: Spontaneous
  Country: DE (occurrence: DE)
  Receive Date: 20231218
  Receipt Date: 20231218
  Transmission Date: 20240109
  Serious: Yes (Other)
  Sender: FDA-Public Use
  Company Number: DE-ALKEM LABORATORIES LIMITED-DE-ALKEM-2022-13835

PATIENT
  Age: 81 Year
  Sex: Female

DRUGS (4)
  1. MYCOPHENOLATE MOFETIL [Suspect]
     Active Substance: MYCOPHENOLATE MOFETIL
     Indication: Pemphigus
     Dosage: 500 MILLIGRAM, BID (EVERY 0.5 DAY)
     Route: 065
     Dates: start: 202207
  2. MYCOPHENOLATE MOFETIL [Suspect]
     Active Substance: MYCOPHENOLATE MOFETIL
     Dosage: 1000 MILLIGRAM, BID (EVERY 0.5 DAY)
     Route: 065
     Dates: start: 202205
  3. MYCOPHENOLATE MOFETIL [Suspect]
     Active Substance: MYCOPHENOLATE MOFETIL
     Dosage: 500 MILLIGRAM, BID (EVERY 0.5 DAY)
     Route: 065
     Dates: start: 2022
  4. CORTISONE [Concomitant]
     Active Substance: CORTISONE
     Indication: Pemphigus
     Dosage: UNK
     Route: 065

REACTIONS (8)
  - Hepatitis [Unknown]
  - Weight decreased [Unknown]
  - Diarrhoea [Unknown]
  - Depression [Not Recovered/Not Resolved]
  - Herpes zoster [Unknown]
  - Thinking abnormal [Not Recovered/Not Resolved]
  - Mental disorder [Not Recovered/Not Resolved]
  - Urinary tract infection [Unknown]
